FAERS Safety Report 7622441-1 (Version None)
Quarter: 2011Q3

REPORT INFORMATION
  Report Type: 
  Country: None (occurrence: None)
  Receive Date: 20110720
  Receipt Date: 20110707
  Transmission Date: 20111222
  Serious: Yes (Hospitalization, Other)
  Sender: FDA-Public Use
  Company Number: US-ELI_LILLY_AND_COMPANY-US201107002493

PATIENT
  Age: 67 Year
  Sex: Male

DRUGS (13)
  1. ZOLOFT [Concomitant]
  2. LANTUS [Concomitant]
     Dosage: 70 U, BID
  3. ASPIRIN [Concomitant]
     Dosage: 81 MG, QD
  4. HUMALOG [Suspect]
     Dosage: 35 U, TID
     Dates: start: 20090101
  5. DIOVAN [Concomitant]
     Dosage: UNK
  6. OMEGA 3                            /01334101/ [Concomitant]
     Dosage: UNK
  7. VITAMIN TAB [Concomitant]
     Dosage: UNK
  8. CRESTOR [Concomitant]
     Dosage: UNK
  9. TYLENOL (CAPLET) [Concomitant]
  10. HUMALOG [Suspect]
     Dosage: UNK
  11. COREG [Concomitant]
     Dosage: UNK
  12. HUMALOG [Suspect]
     Indication: DIABETES MELLITUS
     Dosage: 35 U, TID
     Dates: start: 20090101
  13. PLAVIX [Concomitant]
     Dosage: UNK

REACTIONS (10)
  - HYPERTENSION [None]
  - CORONARY ARTERY OCCLUSION [None]
  - DISORIENTATION [None]
  - INCORRECT DOSE ADMINISTERED [None]
  - FAMILIAL TREMOR [None]
  - LOSS OF CONSCIOUSNESS [None]
  - DYSSTASIA [None]
  - RENAL IMPAIRMENT [None]
  - CEREBROVASCULAR ACCIDENT [None]
  - ANGINA PECTORIS [None]
